FAERS Safety Report 9234034 (Version 1)
Quarter: 2013Q2

REPORT INFORMATION
  Report Type: Spontaneous
  Country: US (occurrence: US)
  Receive Date: 20130416
  Receipt Date: 20130416
  Transmission Date: 20140414
  Serious: Yes (Hospitalization)
  Sender: FDA-Public Use
  Company Number: US-BAYER-2013-046299

PATIENT
  Age: 73 Year
  Sex: Female

DRUGS (6)
  1. CIPRO [Suspect]
     Indication: URINARY TRACT INFECTION
     Dosage: UNK
     Dates: start: 201302, end: 201302
  2. HUMIRA [Suspect]
     Indication: ANKYLOSING SPONDYLITIS
     Dosage: 40 MG SOLUTION FOR INJECTION IN PREFILLED(1 IN 2 WEEK), UNK
     Dates: start: 2011
  3. HUMIRA [Suspect]
     Indication: COLITIS ULCERATIVE
  4. DIOVAN [Concomitant]
     Indication: HYPERTENSION
  5. POTASSIUM [Concomitant]
     Indication: SUPPLEMENTATION THERAPY
  6. COMBIVENT [Concomitant]
     Indication: ASTHMA

REACTIONS (5)
  - Dysuria [Recovered/Resolved]
  - Oedema peripheral [Recovered/Resolved]
  - Dyspnoea [Recovered/Resolved]
  - Dermatitis diaper [None]
  - Arthralgia [None]
